FAERS Safety Report 8345183 (Version 2)
Quarter: 2014Q2

REPORT INFORMATION
  Report Type: Spontaneous
  Country: BR (occurrence: BR)
  Receive Date: 20120120
  Receipt Date: 20140617
  Transmission Date: 20141212
  Serious: Yes (Hospitalization)
  Sender: FDA-Public Use
  Company Number: BR-PFIZER INC-2011260622

PATIENT
  Age: 70 Year
  Sex: Female
  Weight: 70 kg

DRUGS (10)
  1. CHAMPIX [Suspect]
     Indication: SMOKING CESSATION THERAPY
     Dosage: UNK
     Route: 048
     Dates: start: 20111018, end: 201110
  2. CHAMPIX [Suspect]
     Dosage: 1 MG, 2X/DAY
     Route: 048
     Dates: start: 201110, end: 201111
  3. ARADOIS [Concomitant]
     Indication: HYPERTENSION
     Dosage: UNK
     Dates: start: 2007
  4. ARADOIS H [Concomitant]
     Indication: BLOOD PRESSURE ABNORMAL
     Dosage: 50 MG, 1X/DAY
     Dates: start: 2011
  5. GLIFAGE [Concomitant]
     Indication: DIABETES MELLITUS
     Dosage: 850 MG, 2X/DAY
     Dates: start: 2007
  6. LIPITOR [Concomitant]
     Indication: BLOOD CHOLESTEROL ABNORMAL
     Dosage: 40 MG, ONCE DAILY (AT NIGHT)
     Dates: start: 2007
  7. PANTOPRAZOLE [Concomitant]
     Indication: GASTRITIS
     Dosage: 40 MG, ONCE DAILY (FASTING)
  8. RIVOTRIL [Concomitant]
     Indication: SLEEP DISORDER
     Dosage: 12 DROPS (UNSPECIFIED DOSAGE) ONCE DAILY, AT NIGHT
  9. PAMELOR [Concomitant]
     Indication: DEPRESSION
     Dosage: 1 TABLET DAILY
     Dates: start: 2012
  10. PAMELOR [Concomitant]
     Indication: AGITATION

REACTIONS (5)
  - Arthropathy [Unknown]
  - Nausea [Unknown]
  - Hypophagia [Unknown]
  - Increased appetite [Unknown]
  - Arthralgia [Unknown]
